FAERS Safety Report 5095893-1 (Version None)
Quarter: 2006Q3

REPORT INFORMATION
  Report Type: 
  Country: None (occurrence: None)
  Receive Date: 20060727
  Receipt Date: 20060620
  Transmission Date: 20061208
  Serious: No
  Sender: FDA-Public Use
  Company Number: FACT0600282

PATIENT
  Age: 67 Year
  Sex: Male

DRUGS (2)
  1. FACTIVE [Suspect]
     Indication: RESPIRATORY TRACT INFECTION BACTERIAL
  2. TIOTROPIUM (TIOTROPIUM) [Concomitant]

REACTIONS (1)
  - BRADYCARDIA [None]
